FAERS Safety Report 8492706-2 (Version None)
Quarter: 2012Q3

REPORT INFORMATION
  Report Type: 
  Country: None (occurrence: None)
  Receive Date: 20120706
  Receipt Date: 20120703
  Transmission Date: 20120928
  Serious: Yes (Life-Threatening, Hospitalization)
  Sender: FDA-Public Use
  Company Number: US-JNJFOC-20120314167

PATIENT
  Sex: Male

DRUGS (1)
  1. STELARA [Suspect]
     Indication: PSORIASIS
     Dosage: NEXT DOSE WAS ON 30-APR-2012
     Route: 058
     Dates: start: 20120323, end: 20120323

REACTIONS (4)
  - VISION BLURRED [None]
  - PARAESTHESIA [None]
  - DIZZINESS [None]
  - SLUGGISHNESS [None]
